FAERS Safety Report 4616609-6 (Version None)
Quarter: 2005Q1

REPORT INFORMATION
  Report Type: 
  Country: None (occurrence: None)
  Receive Date: 20050318
  Receipt Date: 20050117
  Transmission Date: 20050727
  Serious: Yes (Other)
  Sender: FDA-Public Use
  Company Number: USA-2005-0018363

PATIENT
  Age: 16 Year
  Sex: Male
  Weight: 74.8 kg

DRUGS (1)
  1. SENOKOT-S 8.6 MG/M50MG (DOCUSATE SODIUM, SENNOSIDE A+B) TABLET [Suspect]
     Indication: CONSTIPATION
     Dosage: 2 TABLET, BID, ORAL
     Route: 048
     Dates: start: 20040101

REACTIONS (7)
  - ACTIVITIES OF DAILY LIVING IMPAIRED [None]
  - BODY TEMPERATURE DECREASED [None]
  - ELECTROLYTE IMBALANCE [None]
  - FATIGUE [None]
  - HYPOTENSION [None]
  - INSOMNIA [None]
  - MUSCLE TWITCHING [None]
